FAERS Safety Report 24587303 (Version 4)
Quarter: 2025Q1

REPORT INFORMATION
  Report Type: Report from Study
  Country: US (occurrence: US)
  Receive Date: 20241107
  Receipt Date: 20250319
  Transmission Date: 20250409
  Serious: Yes (Other)
  Sender: TAKEDA
  Company Number: US-TAKEDA-2024TUS109499

PATIENT
  Age: 60 Year
  Sex: Female
  Weight: 78 kg

DRUGS (25)
  1. HUMAN IMMUNOGLOBULIN G [Suspect]
     Active Substance: HUMAN IMMUNOGLOBULIN G
     Indication: Immunodeficiency common variable
     Dosage: 30 GRAM, Q2WEEKS
     Dates: start: 20241006
  2. HUMAN IMMUNOGLOBULIN G [Suspect]
     Active Substance: HUMAN IMMUNOGLOBULIN G
     Indication: Primary immunodeficiency syndrome
  3. HUMAN IMMUNOGLOBULIN G [Suspect]
     Active Substance: HUMAN IMMUNOGLOBULIN G
     Dosage: 30 GRAM, Q2WEEKS
  4. SEROQUEL [Suspect]
     Active Substance: QUETIAPINE FUMARATE
     Indication: Product used for unknown indication
  5. EPINEPHRINE [Concomitant]
     Active Substance: EPINEPHRINE
  6. ACETAMINOPHEN [Concomitant]
     Active Substance: ACETAMINOPHEN
  7. EFFEXOR [Concomitant]
     Active Substance: VENLAFAXINE HYDROCHLORIDE
  8. INTRAROSA [Concomitant]
     Active Substance: PRASTERONE
  9. ESTROGEL [Concomitant]
     Active Substance: ESTRADIOL
  10. SINGULAIR [Concomitant]
     Active Substance: MONTELUKAST SODIUM
  11. LISINOPRIL [Concomitant]
     Active Substance: LISINOPRIL
  12. DIPHENHYDRAMINE HYDROCHLORIDE [Concomitant]
     Active Substance: DIPHENHYDRAMINE HYDROCHLORIDE
  13. BACLOFEN [Concomitant]
     Active Substance: BACLOFEN
  14. ALBUTEROL SULFATE [Concomitant]
     Active Substance: ALBUTEROL SULFATE
  15. SYNTHROID [Concomitant]
     Active Substance: LEVOTHYROXINE SODIUM
  16. CLONAZEPAM [Concomitant]
     Active Substance: CLONAZEPAM
  17. PROAIR RESPICLICK [Concomitant]
     Active Substance: ALBUTEROL SULFATE
  18. LIDOCAINE\PRILOCAINE [Concomitant]
     Active Substance: LIDOCAINE\PRILOCAINE
  19. DIPHENHYDRAMINE HYDROCHLORIDE [Concomitant]
     Active Substance: DIPHENHYDRAMINE HYDROCHLORIDE
  20. PRASTERONE [Concomitant]
     Active Substance: PRASTERONE
  21. LIOTHYRONINE SODIUM [Concomitant]
     Active Substance: LIOTHYRONINE SODIUM
  22. REPATHA [Concomitant]
     Active Substance: EVOLOCUMAB
  23. SYMBICORT [Concomitant]
     Active Substance: BUDESONIDE\FORMOTEROL FUMARATE DIHYDRATE
  24. BENZONATATE [Concomitant]
     Active Substance: BENZONATATE
  25. PROMETRIUM [Concomitant]
     Active Substance: PROGESTERONE

REACTIONS (21)
  - Loss of consciousness [Unknown]
  - Chromaturia [Recovered/Resolved]
  - Blood pressure decreased [Unknown]
  - Incorrect dose administered [Unknown]
  - Inappropriate schedule of product administration [Unknown]
  - Single functional kidney [Unknown]
  - Tooth infection [Unknown]
  - Pancreatic disorder [Unknown]
  - Dermatitis contact [Unknown]
  - Weight decreased [Unknown]
  - Fall [Unknown]
  - Neuralgia [Unknown]
  - Sciatica [Unknown]
  - Haemorrhage [Unknown]
  - Gastrointestinal injury [Unknown]
  - Constipation [Unknown]
  - Affective disorder [Unknown]
  - Sinusitis [Unknown]
  - Diarrhoea [Unknown]
  - Fatigue [Unknown]
  - Tooth abscess [Unknown]

NARRATIVE: CASE EVENT DATE: 20241006
